FAERS Safety Report 23315641 (Version 1)
Quarter: 2023Q4

REPORT INFORMATION
  Report Type: Spontaneous
  Country: GB (occurrence: GB)
  Receive Date: 20231219
  Receipt Date: 20231219
  Transmission Date: 20240110
  Serious: Yes (Life-Threatening, Other)
  Sender: FDA-Public Use
  Company Number: None

PATIENT
  Age: 63 Year
  Sex: Female

DRUGS (9)
  1. CHLORAPREP [Suspect]
     Active Substance: CHLORHEXIDINE GLUCONATE\ISOPROPYL ALCOHOL
     Indication: Anaesthesia
     Dosage: UNK (CHLORHEXIDINE GLUCONATE 20%, ISOPROPANOL 99%)
     Route: 065
     Dates: start: 20211129, end: 20211129
  2. DEXAMETHASONE [Suspect]
     Active Substance: DEXAMETHASONE
     Indication: Anaesthesia
     Dosage: UNK
     Route: 042
     Dates: start: 20211129, end: 20211129
  3. FENTANYL CITRATE [Suspect]
     Active Substance: FENTANYL CITRATE
     Indication: Anaesthesia
     Dosage: 100 UG (SINGLE)
     Route: 042
     Dates: start: 20211129, end: 20211129
  4. GENTAMICIN [Suspect]
     Active Substance: GENTAMICIN
     Indication: Anaesthesia
     Dosage: 160 MG, SINGLE
     Route: 042
     Dates: start: 20211129, end: 20211129
  5. LEVOBUPIVACAINE [Suspect]
     Active Substance: LEVOBUPIVACAINE
     Indication: Anaesthesia
     Dosage: 0.5 %, SINGLE
     Route: 058
     Dates: start: 20211129, end: 20211129
  6. ACETAMINOPHEN [Suspect]
     Active Substance: ACETAMINOPHEN
     Indication: Anaesthesia
     Dosage: UNK, 10 TO 20 ML GIVEN
     Route: 042
     Dates: start: 20211129, end: 20211129
  7. PROPOFOL [Suspect]
     Active Substance: PROPOFOL
     Indication: Anaesthesia
     Dosage: 200 MG (PROPOFOL 20MG/ML EMULSION FOR INJECTION/INFUSION)
     Route: 042
     Dates: start: 20211129, end: 20211129
  8. TEICOPLANIN [Suspect]
     Active Substance: TEICOPLANIN
     Indication: Anaesthesia
     Dosage: 800 MG, SINGLE
     Route: 042
     Dates: start: 20211129, end: 20211129
  9. EPINEPHRINE [Concomitant]
     Active Substance: EPINEPHRINE
     Indication: Anaphylaxis treatment
     Dosage: UNK (5-10MIN OF AFTER INDUCTION OF ANAESTHESIA)
     Route: 065

REACTIONS (3)
  - Anaphylactic reaction [Recovered/Resolved]
  - Product use in unapproved indication [Unknown]
  - Off label use [Unknown]

NARRATIVE: CASE EVENT DATE: 20211129
